FAERS Safety Report 10802967 (Version 3)
Quarter: 2015Q2

REPORT INFORMATION
  Report Type: Spontaneous
  Country: US (occurrence: US)
  Receive Date: 20150217
  Receipt Date: 20150526
  Transmission Date: 20150821
  Serious: Yes (Hospitalization)
  Sender: FDA-Public Use
  Company Number: US-PFIZER INC-2015052431

PATIENT
  Age: 79 Year
  Sex: Female

DRUGS (8)
  1. AMBIEN [Concomitant]
     Active Substance: ZOLPIDEM TARTRATE
     Dosage: 0.5 DF, DAILY (? PILL AT NIGHT)
  2. SYNTHROID [Concomitant]
     Active Substance: LEVOTHYROXINE SODIUM
     Dosage: 12.5 ?G, UNK
  3. PROCARDIA XL [Suspect]
     Active Substance: NIFEDIPINE
     Indication: BLOOD PRESSURE
     Dosage: 60 MG, 1X/DAY
     Route: 048
     Dates: start: 1998
  4. HYDROCODONE BITARTRATE AND ACETAMINOPHEN [Concomitant]
     Active Substance: ACETAMINOPHEN\HYDROCODONE BITARTRATE
     Dosage: 10 MG/325 MG THREE TIMES DAILY
     Dates: start: 2012
  5. PROCARDIA XL [Suspect]
     Active Substance: NIFEDIPINE
     Indication: CARDIAC DISORDER
  6. NEXIUM [Concomitant]
     Active Substance: ESOMEPRAZOLE MAGNESIUM
     Dosage: 20 MG, UNK
     Dates: start: 1999
  7. LOVASTATIN. [Concomitant]
     Active Substance: LOVASTATIN
     Dosage: 80 MG, UNK
     Dates: start: 2004
  8. NEURONTIN [Concomitant]
     Active Substance: GABAPENTIN
     Dosage: 300 MG, 3X/DAY

REACTIONS (6)
  - Fall [Not Recovered/Not Resolved]
  - Cardiac disorder [Not Recovered/Not Resolved]
  - Ligament sprain [Unknown]
  - Back disorder [Not Recovered/Not Resolved]
  - Pain [Unknown]
  - Contusion [Unknown]

NARRATIVE: CASE EVENT DATE: 20141222
